FAERS Safety Report 24255412 (Version 2)
Quarter: 2024Q3

REPORT INFORMATION
  Report Type: Spontaneous
  Country: NL (occurrence: NL)
  Receive Date: 20240827
  Receipt Date: 20240911
  Transmission Date: 20241017
  Serious: Yes (Other)
  Sender: TEVA
  Company Number: None

PATIENT
  Age: 50 Year
  Sex: Female
  Weight: 113 kg

DRUGS (14)
  1. DOXYCYCLINE [Suspect]
     Active Substance: DOXYCYCLINE\DOXYCYCLINE HYCLATE
     Indication: Bronchitis
     Dosage: 1 DAY 1 FIRST DAY?,/ BRAND NAME NOT SPECIFIED
     Route: 065
     Dates: start: 20240722, end: 20240728
  2. FLUTICASONE PROPIONATE [Concomitant]
     Active Substance: FLUTICASONE PROPIONATE
     Indication: Product used for unknown indication
     Dosage: NASAL SPRAY, 50 ?G/DOSE (MICROGRAMS PER DOSE), 50UG/DO / BRAND NAME NOT SPECIFIED
     Route: 045
  3. SERETIDE [Concomitant]
     Active Substance: FLUTICASONE PROPIONATE\SALMETEROL XINAFOATE
     Indication: Product used for unknown indication
     Dosage: INHALATION POWDER, 50/500 ?G/DOSE (MICROGRAMS PER DOSE),SALMETEROL/FLUTICASON  50/500UG/DO / SERE...
     Route: 055
  4. HYDROCORTISONE [Concomitant]
     Active Substance: HYDROCORTISONE\HYDROCORTISONE ACETATE
     Indication: Product used for unknown indication
     Dosage: CAPSULE, 10 MG (MILLIGRAM),/ BRAND NAME NOT SPECIFIED
     Route: 065
  5. HYDROCORTISONE [Concomitant]
     Active Substance: HYDROCORTISONE\HYDROCORTISONE ACETATE
     Indication: Product used for unknown indication
     Dosage: CAPSULE, 5 MG (MILLIGRAM),/ BRAND NAME NOT SPECIFIED
     Route: 065
  6. HYDROCORTISONE [Concomitant]
     Active Substance: HYDROCORTISONE\HYDROCORTISONE ACETATE
     Indication: Product used for unknown indication
     Dosage: CAPSULE, 1 MG (MILLIGRAM),/ BRAND NAME NOT SPECIFIED
     Route: 065
  7. TAPENTADOL [Concomitant]
     Active Substance: TAPENTADOL
     Indication: Product used for unknown indication
     Dosage: MODIFIED-RELEASE TABLET, 50 MG (MILLIGRAM), TAPENTADOL  MGA  / PALEXIA RETARD  MVA
     Route: 065
  8. LISINOPRIL [Concomitant]
     Active Substance: LISINOPRIL
     Indication: Product used for unknown indication
     Dosage: TABLET, 5 MG (MILLIGRAM/ BRAND NAME NOT SPECIFIED
     Route: 065
  9. EBASTINE [Concomitant]
     Active Substance: EBASTINE
     Indication: Product used for unknown indication
     Dosage: TABLET, 5 MG (MILLIGRAM), DESLORATADINE / AERIUS  FILM COVER
     Route: 065
  10. CELEBREX [Concomitant]
     Active Substance: CELECOXIB
     Indication: Product used for unknown indication
     Dosage: CAPSULE, 200 MG (MILLIGRAM), CELECOXIB  / CELEBREX
     Route: 065
  11. TIOTROPIUM [Concomitant]
     Active Substance: TIOTROPIUM
     Indication: Product used for unknown indication
     Dosage: NEBULIZER SOLUTION, 2.5 ?G/DOSE (MICROGRAMS PER DOSE), ? NEBULIZED 2.5UG/DO / BRAND NAME NOT SPEC...
     Route: 065
  12. PANTOPRAZOLE [Concomitant]
     Active Substance: PANTOPRAZOLE
     Indication: Product used for unknown indication
     Dosage: 40 MG, PANTOPRAZOLE TABLET MSR / STOMACH ACID  PANTOPRAZOLE HTP  MSR
     Route: 065
  13. UTROGESTAN [Concomitant]
     Active Substance: PROGESTERONE
     Indication: Product used for unknown indication
     Dosage: CAPSULE, 100 MG (MILLIGRAM), PROGESTERONE / UTROGESTAN
     Route: 065
  14. ESTRADIOL [Concomitant]
     Active Substance: ESTRADIOL
     Indication: Product used for unknown indication
     Dosage: SPRAY, 1.53 MG/DOSE (MILLIGRAMS PER DOSE), ESTRADIOL TRANSDERMAL 1.53MG/DO / LENZETTO  TRANSDERMA...
     Route: 062

REACTIONS (1)
  - Postmenopausal haemorrhage [Recovered/Resolved]
